FAERS Safety Report 24798684 (Version 1)
Quarter: 2025Q1

REPORT INFORMATION
  Report Type: Spontaneous
  Country: US (occurrence: US)
  Receive Date: 20250102
  Receipt Date: 20250102
  Transmission Date: 20250409
  Serious: Yes (Other)
  Sender: ALKEM
  Company Number: None

PATIENT
  Age: 56 Year
  Sex: Female

DRUGS (4)
  1. TACROLIMUS [Suspect]
     Active Substance: TACROLIMUS
     Indication: Immunosuppressant drug therapy
     Route: 065
  2. POSACONAZOLE [Interacting]
     Active Substance: POSACONAZOLE
     Indication: Antifungal prophylaxis
     Dosage: 300 MILLIGRAM, QD (BY MOUTH, DAILY)
     Route: 048
  3. GALCANEZUMAB [Interacting]
     Active Substance: GALCANEZUMAB
     Indication: Migraine
     Route: 065
  4. RIMEGEPANT [Interacting]
     Active Substance: RIMEGEPANT
     Indication: Migraine
     Route: 065

REACTIONS (5)
  - Graft versus host disease [Unknown]
  - Neurotoxicity [Unknown]
  - Dizziness [Unknown]
  - Tremor [Unknown]
  - Drug interaction [Unknown]
